FAERS Safety Report 6903522-4 (Version None)
Quarter: 2010Q3

REPORT INFORMATION
  Report Type: 
  Country: None (occurrence: None)
  Receive Date: 20100803
  Receipt Date: 20081014
  Transmission Date: 20110219
  Serious: No
  Sender: FDA-Public Use
  Company Number: US-PFIZER INC-2008069258

PATIENT
  Sex: Male
  Weight: 102.06 kg

DRUGS (2)
  1. LYRICA [Suspect]
     Indication: NEURALGIA
     Route: 048
     Dates: start: 20080601, end: 20080901
  2. CYMBALTA [Concomitant]

REACTIONS (9)
  - EAR PAIN [None]
  - HYPERSOMNIA [None]
  - MUSCLE SPASMS [None]
  - MYALGIA [None]
  - OEDEMA PERIPHERAL [None]
  - PAIN [None]
  - PAIN IN EXTREMITY [None]
  - SEDATION [None]
  - VISION BLURRED [None]
